FAERS Safety Report 13274332 (Version 1)
Quarter: 2017Q1

REPORT INFORMATION
  Report Type: Report from Study
  Country: KR (occurrence: KR)
  Receive Date: 20170227
  Receipt Date: 20170227
  Transmission Date: 20170428
  Serious: Yes (Death)
  Sender: FDA-Public Use
  Company Number: KR-PURDUE PHARMA-GBR-2017-0043676

PATIENT
  Age: 91 Year
  Sex: Male

DRUGS (2)
  1. IR CODON [Suspect]
     Active Substance: OXYCODONE HYDROCHLORIDE
     Indication: PAIN
     Dosage: 5 MG, DAILY
     Route: 048
  2. TARGIN [Suspect]
     Active Substance: NALOXONE HYDROCHLORIDE\OXYCODONE HYDROCHLORIDE
     Indication: PAIN
     Dosage: 20/10 MG, DAILY
     Route: 048

REACTIONS (1)
  - Disease progression [Fatal]
